FAERS Safety Report 11811274 (Version 1)
Quarter: 2015Q4

REPORT INFORMATION
  Report Type: Spontaneous
  Country: US (occurrence: None)
  Receive Date: 20151207
  Receipt Date: 20151207
  Transmission Date: 20160305
  Serious: Yes (Hospitalization)
  Sender: FDA-Public Use
  Company Number: None

PATIENT
  Age: 16 Year
  Sex: Male
  Weight: 80.4 kg

DRUGS (4)
  1. CYCLOPHOSPHAMIDE. [Suspect]
     Active Substance: CYCLOPHOSPHAMIDE
     Dates: end: 20151122
  2. CISPLATIN. [Suspect]
     Active Substance: CISPLATIN
     Dates: end: 20151120
  3. VINCRISTINE SULFATE. [Suspect]
     Active Substance: VINCRISTINE SULFATE
     Dates: end: 20151120
  4. ETOPOSIDE (VP-16) [Suspect]
     Active Substance: ETOPOSIDE
     Dates: end: 20151122

REACTIONS (6)
  - Renal failure [None]
  - Blood creatinine increased [None]
  - Blood sodium increased [None]
  - Polyuria [None]
  - Nephropathy toxic [None]
  - Urinary retention [None]

NARRATIVE: CASE EVENT DATE: 20151125
